FAERS Safety Report 6872219-1 (Version None)
Quarter: 2010Q3

REPORT INFORMATION
  Report Type: 
  Country: None (occurrence: None)
  Receive Date: 20100723
  Receipt Date: 20100628
  Transmission Date: 20110219
  Serious: Yes (Hospitalization, Other)
  Sender: FDA-Public Use
  Company Number: PHEH2004US08275

PATIENT
  Sex: Female

DRUGS (18)
  1. ZOMETA [Suspect]
     Indication: BREAST CANCER
     Dosage: 4 MG MONTHLY
     Route: 042
     Dates: start: 20020113, end: 20040619
  2. FOSAMAX [Suspect]
     Route: 048
  3. NAVELBINE [Concomitant]
  4. COUMADIN [Concomitant]
     Dosage: 4 MG 4 D WKLY 2 MG 3 D WKLY
  5. FAMVIR [Concomitant]
     Indication: HERPES VIRUS INFECTION
  6. NEXIUM [Concomitant]
     Dosage: 20 MG, QD
  7. EVISTA [Concomitant]
     Dosage: 60 MG, QD
  8. DETROL [Concomitant]
     Dosage: 4 MG, QD
  9. TRAZODONE [Concomitant]
     Dosage: 100 MG, PRN, HS
  10. CLONAZEPAM [Concomitant]
     Dosage: .5 MG, PRN, HS
  11. CELEXA [Concomitant]
     Dosage: 40 MG, QD
  12. NITROFURANTOIN [Concomitant]
     Dosage: 50 MG, QD
  13. TAXANES [Concomitant]
  14. OXYFAST [Concomitant]
  15. CARBOPLATIN [Concomitant]
  16. CYTOXAN [Concomitant]
  17. TYLENOL W/ CODEINE NO. 3 [Concomitant]
  18. VICODIN [Concomitant]

REACTIONS (23)
  - ACQUIRED OESOPHAGEAL WEB [None]
  - ANXIETY [None]
  - ASPIRATION PLEURAL CAVITY [None]
  - ATELECTASIS [None]
  - BONE SCAN ABNORMAL [None]
  - DEBRIDEMENT [None]
  - DIVERTICULUM [None]
  - DYSPNOEA [None]
  - GASTRIC POLYPS [None]
  - GASTROOESOPHAGEAL REFLUX DISEASE [None]
  - HYPERLIPIDAEMIA [None]
  - INJURY [None]
  - MALIGNANT NEOPLASM PROGRESSION [None]
  - OSTEOMYELITIS [None]
  - OSTEONECROSIS OF JAW [None]
  - OVARIAN CANCER METASTATIC [None]
  - PAIN [None]
  - PLEURAL EFFUSION [None]
  - SINUS DISORDER [None]
  - SURGERY [None]
  - SWELLING [None]
  - TOOTH EXTRACTION [None]
  - TOOTHACHE [None]
